FAERS Safety Report 13579915 (Version 3)
Quarter: 2017Q4

REPORT INFORMATION
  Report Type: Report from Study
  Country: DE (occurrence: DE)
  Receive Date: 20170525
  Receipt Date: 20171124
  Transmission Date: 20180320
  Serious: Yes (Hospitalization)
  Sender: FDA-Public Use
  Company Number: DE-BIOGEN-2017BI00406535

PATIENT
  Age: 24 Year
  Sex: Male
  Weight: 83 kg

DRUGS (1)
  1. ZINBRYTA [Suspect]
     Active Substance: DACLIZUMAB
     Indication: RELAPSING-REMITTING MULTIPLE SCLEROSIS
     Route: 058
     Dates: start: 20170213

REACTIONS (3)
  - Road traffic accident [Recovered/Resolved]
  - Muscle contusion [Recovered/Resolved with Sequelae]
  - Fascial rupture [Recovered/Resolved with Sequelae]

NARRATIVE: CASE EVENT DATE: 20170403
